FAERS Safety Report 7418470-3 (Version None)
Quarter: 2011Q2

REPORT INFORMATION
  Report Type: 
  Country: None (occurrence: None)
  Receive Date: 20110415
  Receipt Date: 20110408
  Transmission Date: 20111010
  Serious: Yes (Hospitalization, Disabling)
  Sender: FDA-Public Use
  Company Number: US-MERCK-1103USA01785

PATIENT
  Age: 86 Year
  Sex: Male
  Weight: 81 kg

DRUGS (15)
  1. HYDROCHLOROTHIAZIDE [Concomitant]
     Route: 065
  2. ZOFRAN [Concomitant]
     Indication: VOMITING
     Route: 065
  3. ZOCOR [Concomitant]
     Route: 065
  4. TENORMIN [Concomitant]
     Route: 065
  5. LOMOTIL [Concomitant]
     Indication: DIARRHOEA
     Route: 065
  6. ZOFRAN [Concomitant]
     Indication: NAUSEA
     Route: 065
  7. ACETAMINOPHEN AND HYDROCODONE BITARTRATE [Concomitant]
     Indication: PAIN
     Route: 065
  8. MAGNESIUM CITRATE [Concomitant]
     Indication: CONSTIPATION
     Route: 065
  9. PRIMIDONE [Concomitant]
     Route: 065
  10. DECADRON [Suspect]
     Indication: MULTIPLE MYELOMA
     Route: 048
     Dates: start: 20101119
  11. VELCADE [Suspect]
     Indication: MULTIPLE MYELOMA
     Route: 042
     Dates: start: 20101119
  12. PRILOSEC [Concomitant]
     Route: 065
  13. MIRALAX [Concomitant]
     Route: 065
  14. FRAGMIN [Concomitant]
     Route: 065
  15. LACTULOSE [Concomitant]
     Route: 065

REACTIONS (9)
  - PAIN IN EXTREMITY [None]
  - DYSPEPSIA [None]
  - FALL [None]
  - OSTEOARTHRITIS [None]
  - SPINAL COLUMN STENOSIS [None]
  - MUSCLE ATROPHY [None]
  - LUMBAR RADICULOPATHY [None]
  - ARTHRALGIA [None]
  - HYPOAESTHESIA [None]
